FAERS Safety Report 7716531-2 (Version None)
Quarter: 2011Q3

REPORT INFORMATION
  Report Type: 
  Country: None (occurrence: None)
  Receive Date: 20110829
  Receipt Date: 20110825
  Transmission Date: 20111222
  Serious: Yes (Other)
  Sender: FDA-Public Use
  Company Number: US-ABBOTT-11P-163-0849264-00

PATIENT
  Sex: Male
  Weight: 72.64 kg

DRUGS (1)
  1. ANDROGEL [Suspect]
     Indication: BLOOD TESTOSTERONE DECREASED
     Dates: start: 20110501, end: 20110822

REACTIONS (8)
  - ERYTHEMA [None]
  - URTICARIA [None]
  - LIP SWELLING [None]
  - RASH [None]
  - DERMATITIS CONTACT [None]
  - RASH PAPULAR [None]
  - OEDEMA PERIPHERAL [None]
  - EYE SWELLING [None]
